FAERS Safety Report 19844532 (Version 1)
Quarter: 2021Q3

REPORT INFORMATION
  Report Type: Other
  Country: ZA (occurrence: ZA)
  Receive Date: 20210917
  Receipt Date: 20210917
  Transmission Date: 20211014
  Serious: Yes (Death, Hospitalization)
  Sender: FDA-Public Use
  Company Number: ZA-ROCHE-2817095

PATIENT
  Age: 55 Year
  Sex: Female

DRUGS (1)
  1. ACTEMRA [Suspect]
     Active Substance: TOCILIZUMAB
     Indication: RHEUMATOID ARTHRITIS
     Route: 058
     Dates: start: 20190712

REACTIONS (4)
  - Rheumatoid arthritis [Unknown]
  - COVID-19 [Unknown]
  - Death [Fatal]
  - Disability assessment scale score increased [Unknown]

NARRATIVE: CASE EVENT DATE: 20210406
